FAERS Safety Report 15090521 (Version 1)
Quarter: 2018Q2

REPORT INFORMATION
  Report Type: Spontaneous
  Country: IT (occurrence: IT)
  Receive Date: 20180629
  Receipt Date: 20180629
  Transmission Date: 20180711
  Serious: Yes (Other)
  Sender: FDA-Public Use
  Company Number: IT-MYLANLABS-2018M1046847

PATIENT
  Age: 61 Year
  Sex: Female

DRUGS (1)
  1. CAPECITABINE. [Suspect]
     Active Substance: CAPECITABINE
     Indication: COLON CANCER
     Route: 065

REACTIONS (11)
  - Hypotension [Recovering/Resolving]
  - Hypokalaemia [Recovered/Resolved]
  - Azotaemia [Recovered/Resolved]
  - Blood creatinine increased [Recovered/Resolved]
  - Ileus paralytic [Recovered/Resolved]
  - Sinus tachycardia [Recovering/Resolving]
  - Dry skin [Recovering/Resolving]
  - Metabolic acidosis [Recovered/Resolved]
  - Oliguria [Recovering/Resolving]
  - Leukocytosis [Recovered/Resolved]
  - Hyponatraemia [Recovered/Resolved]
